FAERS Safety Report 4936750-8 (Version None)
Quarter: 2006Q1

REPORT INFORMATION
  Report Type: 
  Country: None (occurrence: None)
  Receive Date: 20060302
  Receipt Date: 20060209
  Transmission Date: 20060701
  Serious: Yes (Other)
  Sender: FDA-Public Use
  Company Number: US_0510122987

PATIENT
  Age: 40 Year
  Sex: Female
  Weight: 54.9 kg

DRUGS (4)
  1. ZYPREXA [Suspect]
     Dosage: 10 MG, DAILY (1/D), ORAL   SEE IMAGE
     Route: 048
     Dates: start: 19980301
  2. HALDOL SOLUTAB [Concomitant]
  3. LANTUS [Concomitant]
  4. DEPO-PROVERA [Concomitant]

REACTIONS (7)
  - DIABETES MELLITUS INADEQUATE CONTROL [None]
  - DIABETES MELLITUS INSULIN-DEPENDENT [None]
  - DIABETIC NEUROPATHY [None]
  - DIABETIC RETINOPATHY [None]
  - VAGINAL HAEMORRHAGE [None]
  - VISION BLURRED [None]
  - WEIGHT FLUCTUATION [None]
